FAERS Safety Report 9007573 (Version 1)
Quarter: 2013Q1

REPORT INFORMATION
  Report Type: Spontaneous
  Country: US (occurrence: US)
  Receive Date: 20130111
  Receipt Date: 20130111
  Transmission Date: 20140127
  Serious: No
  Sender: FDA-Public Use
  Company Number: US-009507513-1301USA003270

PATIENT
  Sex: Female

DRUGS (2)
  1. RIBAVIRIN (WARRICK) [Suspect]
     Indication: HEPATITIS C
  2. PEGINTRON [Suspect]
     Indication: HEPATITIS C
     Dosage: UNK
     Dates: start: 20121218

REACTIONS (8)
  - Skin reaction [Unknown]
  - Acne [Unknown]
  - Oral pain [Unknown]
  - Lip pain [Unknown]
  - Gingival bleeding [Unknown]
  - Dry mouth [Unknown]
  - Decreased appetite [Unknown]
  - Pruritus [Unknown]
